FAERS Safety Report 17880701 (Version 1)
Quarter: 2020Q2

REPORT INFORMATION
  Report Type: Spontaneous
  Country: US (occurrence: US)
  Receive Date: 20200610
  Receipt Date: 20200610
  Transmission Date: 20200714
  Serious: No
  Sender: FDA-Public Use
  Company Number: None

PATIENT
  Age: 71 Year
  Sex: Male
  Weight: 101 kg

DRUGS (2)
  1. RIVAROXABAN (RIVAROXABAN 10MG TAB ) [Suspect]
     Active Substance: RIVAROXABAN
     Indication: CARDIAC FAILURE CONGESTIVE
  2. RIVAROXABAN (RIVAROXABAN 10MG TAB ) [Suspect]
     Active Substance: RIVAROXABAN
     Indication: CARDIOVERSION

REACTIONS (1)
  - Retroperitoneal haemorrhage [None]

NARRATIVE: CASE EVENT DATE: 20180201
